FAERS Safety Report 8922937 (Version 1)
Quarter: 2012Q4

REPORT INFORMATION
  Report Type: Spontaneous
  Country: US (occurrence: None)
  Receive Date: 20121115
  Receipt Date: 20121115
  Transmission Date: 20130627
  Serious: Yes (Other)
  Sender: FDA-Public Use
  Company Number: None

PATIENT
  Age: 47 Year
  Weight: 86.18 kg

DRUGS (1)
  1. LEVAQUIN [Suspect]
     Indication: SINUSITIS
     Route: 048
     Dates: start: 20121109, end: 20121111

REACTIONS (7)
  - Plantar fasciitis [None]
  - Weight bearing difficulty [None]
  - Joint range of motion decreased [None]
  - Arthralgia [None]
  - Musculoskeletal pain [None]
  - Pain [None]
  - Joint crepitation [None]
